FAERS Safety Report 4669743-9 (Version None)
Quarter: 2005Q2

REPORT INFORMATION
  Report Type: 
  Country: None (occurrence: None)
  Receive Date: 20050520
  Receipt Date: 20050509
  Transmission Date: 20051028
  Serious: Yes (Death)
  Sender: FDA-Public Use
  Company Number: GXKR2005GB01031

PATIENT
  Sex: Male

DRUGS (22)
  1. ACETYLSALICYLIC ACID (NGX) (ACETYLSALICYLIC ACID [Suspect]
     Dosage: 75 MG, QD
  2. BECLOMETHASONE (NGX)(BLECLOMETHASONE) UNKNOWN [Suspect]
     Dosage: 50 UG; 2 BID, RESPIRATORY
     Route: 055
  3. LACTULOSE CONCENTRATION (NGX)(LACTULOSE CONCENTRATE) UNKNOWN [Suspect]
  4. TEMAZEPAM (NGX)(TEMAZEPAM) UNKNOWN [Suspect]
     Dosage: 10 MG, 1-2 NOCTE
  5. FUROSEMIDE  (NGX)(METOCLOPRAMIDE) [Suspect]
  6. METOCLOPRAMIDE [Suspect]
     Dosage: 10 MG, TID
  7. DILTIAZEM (NGX)(DILTIAZEM) UNKOWN [Suspect]
     Dosage: 60 MG, BID
  8. COMBIVENT /GFR(IPRATROPIUM BROMIDE, SALBUTAMOL SULFATE)INHALER [Suspect]
     Dosage: QID, RESPIRATORY
     Route: 055
  9. SPIRIVA [Suspect]
     Dosage: 18 MCG, RESPIRATORY
     Route: 055
  10. SALBUTAMOL (SALBUTAMOL) [Suspect]
     Dosage: 100 UG, BID PRN, RESPIRATORY
     Route: 055
  11. ATORVASTATIN CALCIUM [Suspect]
     Dosage: 10 MG
  12. FRUMIL (AMILORIDE HYDROCHLORIDE, FUROSEMIDE) [Suspect]
  13. DEXAMETHASONE [Suspect]
     Dosage: 2 MG
  14. DOTHIEPIN HYDROCHLORIDE [Suspect]
     Dosage: 75 MG, 1 NOCTE
  15. GAVISCON   /GFR/(SODIUM ALGINATE, SODIUM BICARBONATE0 [Suspect]
     Dosage: 10 ML, QID
  16. LANSOPRAZOLE [Suspect]
     Dosage: 30 MG, QD
  17. NITROLINGUAL (GLYCERYL TRINITRATE [Suspect]
     Dosage: 400 MG
  18. NOZINAN / NET (LEVOMEPROMAZINE) [Suspect]
     Dosage: 25 MG, QID
  19. OXYCODONE (OXYCODONE) [Suspect]
     Dosage: 20 MG, BID
  20. OXYGEN (OXYGEN) [Suspect]
     Dosage: RESPIRATORY
     Route: 055
  21. SPIRONOLACTONE [Suspect]
     Dosage: 50 MG
  22. SYMBICORT TURBUHALER (BUDESONIDE, FORMOTEROL FUMARATE) [Suspect]
     Dosage: 200/6 MCG 1- 2 PUFFS, BID, RESPIRATORY
     Route: 055

REACTIONS (1)
  - LUNG NEOPLASM MALIGNANT [None]
